FAERS Safety Report 23611524 (Version 2)
Quarter: 2024Q2

REPORT INFORMATION
  Report Type: Spontaneous
  Country: US (occurrence: US)
  Receive Date: 20240308
  Receipt Date: 20240403
  Transmission Date: 20240715
  Serious: Yes (Other)
  Sender: FDA-Public Use
  Company Number: US-TAKEDA-2024TUS020301

PATIENT
  Age: 64 Year
  Sex: Female
  Weight: 70.4 kg

DRUGS (54)
  1. VONVENDI [Suspect]
     Active Substance: VON WILLEBRAND FACTOR (RECOMBINANT)
     Indication: Prophylaxis
     Dosage: 4500 INTERNATIONAL UNIT, 2/WEEK
     Route: 065
     Dates: start: 20230109
  2. VONVENDI [Suspect]
     Active Substance: VON WILLEBRAND FACTOR (RECOMBINANT)
     Indication: Von Willebrand^s disease
     Dosage: 4500 INTERNATIONAL UNIT, 2/WEEK
     Route: 065
     Dates: start: 20230113
  3. VONVENDI [Suspect]
     Active Substance: VON WILLEBRAND FACTOR (RECOMBINANT)
     Dosage: 4500 INTERNATIONAL UNIT, 2/WEEK
     Route: 065
     Dates: start: 20230116
  4. VONVENDI [Suspect]
     Active Substance: VON WILLEBRAND FACTOR (RECOMBINANT)
     Dosage: 4500 INTERNATIONAL UNIT, 2/WEEK
     Route: 065
     Dates: start: 20230120
  5. VONVENDI [Suspect]
     Active Substance: VON WILLEBRAND FACTOR (RECOMBINANT)
     Dosage: 4500 INTERNATIONAL UNIT, 2/WEEK
     Route: 065
     Dates: start: 20230123
  6. VONVENDI [Suspect]
     Active Substance: VON WILLEBRAND FACTOR (RECOMBINANT)
     Dosage: 4500 INTERNATIONAL UNIT, 2/WEEK
     Route: 065
     Dates: start: 20230127
  7. VONVENDI [Suspect]
     Active Substance: VON WILLEBRAND FACTOR (RECOMBINANT)
     Dosage: 4500 INTERNATIONAL UNIT, 2/WEEK
     Route: 065
     Dates: start: 20230130
  8. VONVENDI [Suspect]
     Active Substance: VON WILLEBRAND FACTOR (RECOMBINANT)
     Dosage: 4500 INTERNATIONAL UNIT, 2/WEEK
     Route: 065
     Dates: start: 20230203
  9. VONVENDI [Suspect]
     Active Substance: VON WILLEBRAND FACTOR (RECOMBINANT)
     Dosage: 4500 INTERNATIONAL UNIT, 2/WEEK
     Route: 065
     Dates: start: 20230206
  10. VONVENDI [Suspect]
     Active Substance: VON WILLEBRAND FACTOR (RECOMBINANT)
     Dosage: 4500 INTERNATIONAL UNIT, 2/WEEK
     Route: 065
     Dates: start: 20230210
  11. VONVENDI [Suspect]
     Active Substance: VON WILLEBRAND FACTOR (RECOMBINANT)
     Dosage: 4500 INTERNATIONAL UNIT, 2/WEEK
     Route: 065
     Dates: start: 20230218
  12. VONVENDI [Suspect]
     Active Substance: VON WILLEBRAND FACTOR (RECOMBINANT)
     Dosage: 4500 INTERNATIONAL UNIT, 2/WEEK
     Route: 065
     Dates: start: 20230220
  13. VONVENDI [Suspect]
     Active Substance: VON WILLEBRAND FACTOR (RECOMBINANT)
     Dosage: 4500 INTERNATIONAL UNIT, 2/WEEK
     Route: 065
     Dates: start: 20230224
  14. VONVENDI [Suspect]
     Active Substance: VON WILLEBRAND FACTOR (RECOMBINANT)
     Dosage: 4500 INTERNATIONAL UNIT, 2/WEEK
     Route: 065
     Dates: start: 20230227
  15. VONVENDI [Suspect]
     Active Substance: VON WILLEBRAND FACTOR (RECOMBINANT)
     Dosage: 4500 INTERNATIONAL UNIT, 2/WEEK
     Route: 065
     Dates: start: 20230303
  16. VONVENDI [Suspect]
     Active Substance: VON WILLEBRAND FACTOR (RECOMBINANT)
     Dosage: 4500 INTERNATIONAL UNIT, 2/WEEK
     Route: 065
     Dates: start: 20230306
  17. VONVENDI [Suspect]
     Active Substance: VON WILLEBRAND FACTOR (RECOMBINANT)
     Dosage: 4500 INTERNATIONAL UNIT, 2/WEEK
     Route: 065
     Dates: start: 20230311
  18. VONVENDI [Suspect]
     Active Substance: VON WILLEBRAND FACTOR (RECOMBINANT)
     Dosage: 4500 INTERNATIONAL UNIT, 2/WEEK
     Route: 065
     Dates: start: 20230314
  19. VONVENDI [Suspect]
     Active Substance: VON WILLEBRAND FACTOR (RECOMBINANT)
     Dosage: 4500 INTERNATIONAL UNIT, 2/WEEK
     Route: 065
     Dates: start: 20230317
  20. VONVENDI [Suspect]
     Active Substance: VON WILLEBRAND FACTOR (RECOMBINANT)
     Dosage: 4500 INTERNATIONAL UNIT, 2/WEEK
     Route: 065
     Dates: start: 20230321
  21. VONVENDI [Suspect]
     Active Substance: VON WILLEBRAND FACTOR (RECOMBINANT)
     Dosage: 4500 INTERNATIONAL UNIT, 2/WEEK
     Route: 065
     Dates: start: 20230327
  22. VONVENDI [Suspect]
     Active Substance: VON WILLEBRAND FACTOR (RECOMBINANT)
     Dosage: 4500 INTERNATIONAL UNIT, 2/WEEK
     Route: 065
     Dates: start: 20230331
  23. VONVENDI [Suspect]
     Active Substance: VON WILLEBRAND FACTOR (RECOMBINANT)
     Dosage: 4500 INTERNATIONAL UNIT, 2/WEEK
     Route: 065
     Dates: start: 20230404
  24. VONVENDI [Suspect]
     Active Substance: VON WILLEBRAND FACTOR (RECOMBINANT)
     Dosage: 4500 INTERNATIONAL UNIT, 2/WEEK
     Route: 065
     Dates: start: 20230407
  25. VONVENDI [Suspect]
     Active Substance: VON WILLEBRAND FACTOR (RECOMBINANT)
     Dosage: 4500 INTERNATIONAL UNIT, 2/WEEK
     Route: 065
     Dates: start: 20230410
  26. VONVENDI [Suspect]
     Active Substance: VON WILLEBRAND FACTOR (RECOMBINANT)
     Dosage: 4500 INTERNATIONAL UNIT, 2/WEEK
     Route: 065
     Dates: start: 20230414
  27. VONVENDI [Suspect]
     Active Substance: VON WILLEBRAND FACTOR (RECOMBINANT)
     Dosage: 4500 INTERNATIONAL UNIT, 2/WEEK
     Route: 065
     Dates: start: 20230417
  28. VONVENDI [Suspect]
     Active Substance: VON WILLEBRAND FACTOR (RECOMBINANT)
     Dosage: 4500 INTERNATIONAL UNIT, 2/WEEK
     Route: 065
     Dates: start: 20230421
  29. VONVENDI [Suspect]
     Active Substance: VON WILLEBRAND FACTOR (RECOMBINANT)
     Dosage: 4500 INTERNATIONAL UNIT, 2/WEEK
     Route: 065
     Dates: start: 20230424
  30. VONVENDI [Suspect]
     Active Substance: VON WILLEBRAND FACTOR (RECOMBINANT)
     Dosage: 4500 INTERNATIONAL UNIT, 2/WEEK
     Route: 065
     Dates: start: 20230428
  31. VONVENDI [Suspect]
     Active Substance: VON WILLEBRAND FACTOR (RECOMBINANT)
     Dosage: 4500 INTERNATIONAL UNIT, 2/WEEK
     Route: 065
     Dates: start: 20230501
  32. VONVENDI [Suspect]
     Active Substance: VON WILLEBRAND FACTOR (RECOMBINANT)
     Dosage: 4500 INTERNATIONAL UNIT, 2/WEEK
     Route: 065
     Dates: start: 20230505
  33. VONVENDI [Suspect]
     Active Substance: VON WILLEBRAND FACTOR (RECOMBINANT)
     Dosage: 4500 INTERNATIONAL UNIT, 2/WEEK
     Route: 065
     Dates: start: 20230508
  34. VONVENDI [Suspect]
     Active Substance: VON WILLEBRAND FACTOR (RECOMBINANT)
     Dosage: 4500 INTERNATIONAL UNIT, 2/WEEK
     Route: 065
     Dates: start: 20230512
  35. VONVENDI [Suspect]
     Active Substance: VON WILLEBRAND FACTOR (RECOMBINANT)
     Dosage: 4500 INTERNATIONAL UNIT, 2/WEEK
     Route: 065
     Dates: start: 20230515
  36. VONVENDI [Suspect]
     Active Substance: VON WILLEBRAND FACTOR (RECOMBINANT)
     Dosage: 4500 INTERNATIONAL UNIT, 2/WEEK
     Route: 065
     Dates: start: 20230519
  37. VONVENDI [Suspect]
     Active Substance: VON WILLEBRAND FACTOR (RECOMBINANT)
     Dosage: 4500 INTERNATIONAL UNIT, 2/WEEK
     Route: 065
     Dates: start: 20230522
  38. VONVENDI [Suspect]
     Active Substance: VON WILLEBRAND FACTOR (RECOMBINANT)
     Dosage: 4500 INTERNATIONAL UNIT, 2/WEEK
     Route: 065
     Dates: start: 20230527
  39. VONVENDI [Suspect]
     Active Substance: VON WILLEBRAND FACTOR (RECOMBINANT)
     Dosage: 4500 INTERNATIONAL UNIT, 2/WEEK
     Route: 065
     Dates: start: 20230529
  40. VONVENDI [Suspect]
     Active Substance: VON WILLEBRAND FACTOR (RECOMBINANT)
     Dosage: 4500 INTERNATIONAL UNIT, 2/WEEK
     Route: 065
     Dates: start: 20230602
  41. VONVENDI [Suspect]
     Active Substance: VON WILLEBRAND FACTOR (RECOMBINANT)
     Dosage: 4500 INTERNATIONAL UNIT, 2/WEEK
     Route: 065
     Dates: start: 20230605
  42. VONVENDI [Suspect]
     Active Substance: VON WILLEBRAND FACTOR (RECOMBINANT)
     Dosage: 4500 INTERNATIONAL UNIT, 2/WEEK
     Route: 065
     Dates: start: 20230609
  43. VONVENDI [Suspect]
     Active Substance: VON WILLEBRAND FACTOR (RECOMBINANT)
     Dosage: 4500 INTERNATIONAL UNIT, 2/WEEK
     Route: 065
     Dates: start: 20230612
  44. VONVENDI [Suspect]
     Active Substance: VON WILLEBRAND FACTOR (RECOMBINANT)
     Dosage: 4500 INTERNATIONAL UNIT, 2/WEEK
     Route: 065
     Dates: start: 20230616
  45. VONVENDI [Suspect]
     Active Substance: VON WILLEBRAND FACTOR (RECOMBINANT)
     Dosage: 4500 INTERNATIONAL UNIT, 2/WEEK
     Route: 065
     Dates: start: 20230619
  46. VONVENDI [Suspect]
     Active Substance: VON WILLEBRAND FACTOR (RECOMBINANT)
     Dosage: 4500 INTERNATIONAL UNIT, 2/WEEK
     Route: 065
     Dates: start: 20230623
  47. VONVENDI [Suspect]
     Active Substance: VON WILLEBRAND FACTOR (RECOMBINANT)
     Dosage: 4500 INTERNATIONAL UNIT, 2/WEEK
     Route: 065
     Dates: start: 20230626
  48. VONVENDI [Suspect]
     Active Substance: VON WILLEBRAND FACTOR (RECOMBINANT)
     Dosage: 4500 INTERNATIONAL UNIT, 2/WEEK
     Route: 065
  49. VONVENDI [Suspect]
     Active Substance: VON WILLEBRAND FACTOR (RECOMBINANT)
     Dosage: 4500 INTERNATIONAL UNIT, 2/WEEK
     Route: 065
  50. VONVENDI [Suspect]
     Active Substance: VON WILLEBRAND FACTOR (RECOMBINANT)
     Dosage: 4500 INTERNATIONAL UNIT, 2/WEEK
     Route: 065
  51. FERROUS GLUCONATE [Concomitant]
     Active Substance: FERROUS GLUCONATE
     Indication: Blood iron decreased
     Dosage: 324 MILLIGRAM
     Route: 048
     Dates: start: 20230523
  52. ATORVASTATIN [Concomitant]
     Active Substance: ATORVASTATIN
     Indication: Blood cholesterol
     Dosage: 10 MILLIGRAM, QD
     Route: 065
     Dates: start: 20180214
  53. METFORMIN [Concomitant]
     Active Substance: METFORMIN HYDROCHLORIDE
     Indication: Type 2 diabetes mellitus
     Dosage: 2 DOSAGE FORM
     Route: 065
     Dates: start: 20190410
  54. METFORMIN [Concomitant]
     Active Substance: METFORMIN HYDROCHLORIDE
     Dosage: 500 MILLIGRAM
     Route: 065

REACTIONS (7)
  - Product reconstitution quality issue [Recovered/Resolved]
  - Product impurity [Recovered/Resolved]
  - Device occlusion [Recovered/Resolved]
  - Wrong technique in product usage process [Recovered/Resolved]
  - Incorrect dose administered [Recovered/Resolved]
  - Product dose omission issue [Unknown]
  - Injury associated with device [Unknown]

NARRATIVE: CASE EVENT DATE: 20230113
